FAERS Safety Report 7673939-1 (Version None)
Quarter: 2011Q3

REPORT INFORMATION
  Report Type: 
  Country: None (occurrence: None)
  Receive Date: 20110810
  Receipt Date: 20110509
  Transmission Date: 20111222
  Serious: No
  Sender: FDA-Public Use
  Company Number: US-GLAXOSMITHKLINE-A0927335A

PATIENT
  Age: 87 Year
  Sex: Male

DRUGS (3)
  1. PAXIL CR [Suspect]
     Indication: DEPRESSION
     Dosage: 12.5MG PER DAY
     Route: 048
     Dates: start: 20071101, end: 20101101
  2. ABILIFY [Concomitant]
  3. NEXIUM [Concomitant]

REACTIONS (5)
  - BLISTER [None]
  - PRURITUS [None]
  - PARAESTHESIA [None]
  - BLOOD BLISTER [None]
  - ALOPECIA [None]
